FAERS Safety Report 10243290 (Version 6)
Quarter: 2015Q2

REPORT INFORMATION
  Report Type: Report from Study
  Country: AU (occurrence: AU)
  Receive Date: 20140618
  Receipt Date: 20150629
  Transmission Date: 20150821
  Serious: Yes (Death, Hospitalization)
  Sender: FDA-Public Use
  Company Number: PHHY2014AU073677

PATIENT
  Age: 87 Year
  Sex: Male

DRUGS (1)
  1. SANDOSTATIN LAR DEPOT [Suspect]
     Active Substance: OCTREOTIDE ACETATE
     Indication: VIPOMA
     Dosage: 30 MG
     Route: 030
     Dates: start: 20140529

REACTIONS (4)
  - Asthenia [Recovering/Resolving]
  - Malignant melanoma [Recovering/Resolving]
  - Second primary malignancy [Recovering/Resolving]
  - Death [Fatal]

NARRATIVE: CASE EVENT DATE: 20150611
